FAERS Safety Report 6072459-8 (Version None)
Quarter: 2009Q1

REPORT INFORMATION
  Report Type: 
  Country: None (occurrence: None)
  Receive Date: 20090210
  Receipt Date: 20090203
  Transmission Date: 20090719
  Serious: Yes (Other)
  Sender: FDA-Public Use
  Company Number: US-PFIZER INC-2008155904

PATIENT
  Sex: Female
  Weight: 132.43 kg

DRUGS (2)
  1. CHANTIX [Suspect]
     Indication: SMOKING CESSATION THERAPY
     Dosage: 0.5 MG, 1X/DAY
     Dates: start: 20070101, end: 20070101
  2. RANITIDINE [Concomitant]
     Indication: GASTROOESOPHAGEAL REFLUX DISEASE
     Dosage: UNK

REACTIONS (10)
  - ANTIBODY TEST ABNORMAL [None]
  - AUTOIMMUNE THYROIDITIS [None]
  - DEPRESSION [None]
  - HEART RATE INCREASED [None]
  - HYPERTENSION [None]
  - ILL-DEFINED DISORDER [None]
  - METABOLIC SYNDROME [None]
  - OEDEMA [None]
  - SLEEP APNOEA SYNDROME [None]
  - TYPE 2 DIABETES MELLITUS [None]
